FAERS Safety Report 11466109 (Version 1)
Quarter: 2015Q3

REPORT INFORMATION
  Report Type: Spontaneous
  Country: US (occurrence: US)
  Receive Date: 20150907
  Receipt Date: 20150907
  Transmission Date: 20151125
  Serious: Yes (Other)
  Sender: FDA-Public Use
  Company Number: US-TAKEDA-2014TUS010766

PATIENT

DRUGS (11)
  1. GLUCOPHAGE [Concomitant]
     Active Substance: METFORMIN HYDROCHLORIDE
     Dosage: 500 MG, BID
     Dates: start: 2003
  2. DIABETA                            /00145301/ [Concomitant]
     Dosage: 4 MG, QD
     Dates: start: 2008, end: 201501
  3. BYETTA [Concomitant]
     Active Substance: EXENATIDE
     Dosage: 10 MG, BID
     Dates: start: 2010
  4. COLESEVELAM [Concomitant]
     Active Substance: COLESEVELAM
     Indication: DIABETES MELLITUS
     Dosage: 625 MG, BID
     Dates: start: 2013
  5. HUMALOG [Concomitant]
     Active Substance: INSULIN LISPRO
     Dosage: 10 MG, BID FROM LATE 1990S
     Dates: end: 201412
  6. LANTUS [Concomitant]
     Active Substance: INSULIN GLARGINE
     Dosage: 46 IU, QD AT  NIGHT
     Dates: start: 2012
  7. METFORMIN [Concomitant]
     Active Substance: METFORMIN HYDROCHLORIDE
     Dosage: 1000 MG, QD
     Dates: start: 2000, end: 2014
  8. AVANDIA [Concomitant]
     Active Substance: ROSIGLITAZONE MALEATE
     Dosage: UNK
     Dates: start: 2005, end: 2012
  9. IFEX [Concomitant]
     Active Substance: IFOSFAMIDE
     Dosage: UNK
     Dates: start: 2013
  10. ACTOS [Suspect]
     Active Substance: PIOGLITAZONE HYDROCHLORIDE
     Indication: TYPE 2 DIABETES MELLITUS
     Dosage: 15 MG TO 45 MG, UNK
     Route: 048
     Dates: start: 20080103, end: 20130501
  11. AMARYL [Concomitant]
     Active Substance: GLIMEPIRIDE
     Dosage: 4 MG, QD
     Dates: start: 2010, end: 201501

REACTIONS (1)
  - Bladder cancer [Unknown]

NARRATIVE: CASE EVENT DATE: 20130521
